FAERS Safety Report 11536310 (Version 1)
Quarter: 2015Q3

REPORT INFORMATION
  Report Type: Spontaneous
  Country: None (occurrence: None)
  Receive Date: 20150921
  Receipt Date: 20150921
  Transmission Date: 20151125
  Serious: Yes (Other)
  Sender: FDA-Public Use
  Company Number: None

PATIENT
  Age: 47 Year
  Weight: 99.79 kg

DRUGS (1)
  1. GABAPENTIN. [Suspect]
     Active Substance: GABAPENTIN
     Indication: DEPRESSION
     Dosage: 1
     Route: 048
     Dates: start: 20150909, end: 20150909

REACTIONS (11)
  - Agitation [None]
  - Myalgia [None]
  - Stress [None]
  - Hypoaesthesia [None]
  - Somnolence [None]
  - Pain [None]
  - Muscle strain [None]
  - Blood iron decreased [None]
  - Feeling abnormal [None]
  - Panic reaction [None]
  - Muscle tightness [None]

NARRATIVE: CASE EVENT DATE: 20150909
